FAERS Safety Report 8611079 (Version 2)
Quarter: 2012Q4

REPORT INFORMATION
  Report Type: 
  Country: FR (occurrence: FR)
  Receive Date: 20120612
  Receipt Date: 20120829
  Transmission Date: 20130627
  Serious: Yes (Hospitalization, Other)
  Sender: FDA-Public Use
  Company Number: FR-JNJFOC-20120603602

PATIENT
  Age: 72 Year
  Sex: Male
  Weight: 86 kg

DRUGS (7)
  1. XARELTO [Suspect]
     Indication: HIP ARTHROPLASTY
     Route: 048
     Dates: start: 201003
  2. XARELTO [Suspect]
     Indication: THROMBOSIS PROPHYLAXIS
     Route: 048
     Dates: start: 201003
  3. ATENOLOL [Concomitant]
  4. ENALAPRIL [Concomitant]
  5. METFORMIN [Concomitant]
  6. PRAVASTATIN [Concomitant]
  7. SERESTA [Concomitant]

REACTIONS (1)
  - Deep vein thrombosis postoperative [Recovered/Resolved]
